FAERS Safety Report 24153930 (Version 1)
Quarter: 2024Q3

REPORT INFORMATION
  Report Type: Spontaneous
  Country: GB (occurrence: RU)
  Receive Date: 20240730
  Receipt Date: 20240730
  Transmission Date: 20241017
  Serious: Yes (Other)
  Sender: SUNOVION
  Company Number: RU-CNX THERAPEUTICS-2024CNX000444

PATIENT

DRUGS (2)
  1. LATUDA [Suspect]
     Active Substance: LURASIDONE HYDROCHLORIDE
     Indication: Schizophrenia
     Dosage: 120 MG
     Route: 048
  2. LATUDA [Suspect]
     Active Substance: LURASIDONE HYDROCHLORIDE
     Dosage: 160 MG
     Route: 048

REACTIONS (5)
  - Hallucination, auditory [Unknown]
  - Mental impairment [Unknown]
  - Energy increased [Unknown]
  - Psychomotor hyperactivity [Unknown]
  - Restlessness [Unknown]
